FAERS Safety Report 23577990 (Version 1)
Quarter: 2024Q1

REPORT INFORMATION
  Report Type: Spontaneous
  Country: FR (occurrence: FR)
  Receive Date: 20240228
  Receipt Date: 20240228
  Transmission Date: 20240410
  Serious: Yes (Hospitalization, Other)
  Sender: FDA-Public Use
  Company Number: None

PATIENT
  Age: 60 Year
  Sex: Male
  Weight: 89 kg

DRUGS (2)
  1. IPILIMUMAB [Suspect]
     Active Substance: IPILIMUMAB
     Indication: Epithelioid mesothelioma
     Route: 042
     Dates: start: 20230804, end: 20240119
  2. NIVOLUMAB [Suspect]
     Active Substance: NIVOLUMAB
     Indication: Epithelioid mesothelioma
     Route: 042
     Dates: start: 20230804, end: 20240119

REACTIONS (3)
  - Anti-neuronal antibody [Recovered/Resolved]
  - Encephalitis [Recovered/Resolved]
  - Off label use [Unknown]

NARRATIVE: CASE EVENT DATE: 20231225
